FAERS Safety Report 22799762 (Version 2)
Quarter: 2023Q4

REPORT INFORMATION
  Report Type: Spontaneous
  Country: US (occurrence: US)
  Receive Date: 20230808
  Receipt Date: 20231106
  Transmission Date: 20240110
  Serious: No
  Sender: FDA-Public Use
  Company Number: US-CLIENT CHANGE ME-2023-IMC-001750

PATIENT
  Age: 45 Year
  Sex: Male

DRUGS (1)
  1. KIMMTRAK [Suspect]
     Active Substance: TEBENTAFUSP-TEBN
     Indication: Uveal melanoma
     Dosage: 68 MICROGRAM, SINGLE, DOSE 1

REACTIONS (3)
  - Product dose omission issue [Unknown]
  - Product preparation error [Unknown]
  - No adverse event [Unknown]
